FAERS Safety Report 8443038 (Version 3)
Quarter: 2013Q2

REPORT INFORMATION
  Report Type: Report from Study
  Country: FR (occurrence: FR)
  Receive Date: 20120306
  Receipt Date: 20130628
  Transmission Date: 20140414
  Serious: Yes (Death, Hospitalization)
  Sender: FDA-Public Use
  Company Number: FR-ROCHE-1043504

PATIENT
  Age: 53 Year
  Sex: Female

DRUGS (16)
  1. RITUXIMAB [Suspect]
     Indication: B-CELL LYMPHOMA
     Dosage: INDUCTION TREATMENT
     Route: 042
     Dates: start: 20070920
  2. RITUXIMAB [Suspect]
     Dosage: INDUCTION TREATMENT
     Route: 065
     Dates: start: 20070927
  3. RITUXIMAB [Suspect]
     Dosage: INDUCTION TREATMENT
     Route: 065
     Dates: start: 20071004
  4. RITUXIMAB [Suspect]
     Dosage: INDUCTION TREATMENT
     Route: 065
     Dates: start: 20071011
  5. RITUXIMAB [Suspect]
     Route: 065
     Dates: start: 20071120
  6. RITUXIMAB [Suspect]
     Dosage: MAINTENANCE TREATMENT
     Route: 065
     Dates: start: 20080110
  7. RITUXIMAB [Suspect]
     Dosage: MAINTENANCE TREATMENT
     Route: 065
     Dates: start: 20080410
  8. RITUXIMAB [Suspect]
     Dosage: MAINTENANCE TREATMENT
     Route: 065
     Dates: start: 20080925
  9. RITUXIMAB [Suspect]
     Dosage: MAINTENANCE TREATMENT
     Route: 065
     Dates: start: 20081218
  10. RITUXIMAB [Suspect]
     Dosage: MAINTENANCE TREATMENT
     Route: 065
     Dates: start: 20090312
  11. RITUXIMAB [Suspect]
     Dosage: MAINTENANCE TREATMENT
     Route: 065
     Dates: start: 20090611
  12. RITUXIMAB [Suspect]
     Dosage: MAINTENANCE TREATMENT
     Route: 065
     Dates: start: 20090903, end: 20091126
  13. LEVOTHYROXINE [Concomitant]
     Indication: HYPOTHYROIDISM
     Route: 048
  14. ALPRAZOLAM [Concomitant]
     Indication: ANXIETY
     Route: 048
  15. AVLOCARDYL [Concomitant]
     Indication: HYPERTENSION
     Route: 048
  16. FUROSEMIDE [Concomitant]
     Indication: RENAL FAILURE
     Dosage: 1/4 PER DAY
     Route: 048
     Dates: start: 20120401

REACTIONS (1)
  - Lung adenocarcinoma [Fatal]
